FAERS Safety Report 15125241 (Version 1)
Quarter: 2018Q3

REPORT INFORMATION
  Report Type: Spontaneous
  Country: CN (occurrence: CN)
  Receive Date: 20180710
  Receipt Date: 20180710
  Transmission Date: 20181010
  Serious: Yes (Hospitalization, Other)
  Sender: FDA-Public Use
  Company Number: CN-BAYER-2018-124188

PATIENT
  Age: 46 Year
  Sex: Male
  Weight: 81 kg

DRUGS (3)
  1. EPALRESTAT [Suspect]
     Active Substance: EPALRESTAT
     Indication: NERVOUS SYSTEM DISORDER
     Dosage: 50 MG, TID
     Route: 048
     Dates: start: 20180316, end: 20180319
  2. METFORMIN [Concomitant]
     Active Substance: METFORMIN HYDROCHLORIDE
  3. GLUCOBAY [Suspect]
     Active Substance: ACARBOSE
     Indication: HYPERGLYCAEMIA
     Dosage: 100 MG, TID
     Route: 048
     Dates: start: 20180316, end: 20180319

REACTIONS (4)
  - Pyrexia [Recovered/Resolved]
  - Feeling cold [Recovered/Resolved]
  - C-reactive protein increased [Recovered/Resolved]
  - Alanine aminotransferase increased [Recovered/Resolved]

NARRATIVE: CASE EVENT DATE: 20180319
